FAERS Safety Report 24896955 (Version 1)
Quarter: 2025Q1

REPORT INFORMATION
  Report Type: Spontaneous
  Country: US (occurrence: US)
  Receive Date: 20250128
  Receipt Date: 20250128
  Transmission Date: 20250409
  Serious: No
  Sender: AMGEN
  Company Number: US-AMGEN-USASP2025016841

PATIENT
  Sex: Female

DRUGS (1)
  1. TEPEZZA [Suspect]
     Active Substance: TEPROTUMUMAB-TRBW
     Indication: Toxic goitre
     Dosage: UNK UNK, Q3WK (WEEK 0: 572MG PIV X1 DOSE. WEEK 3: 1143MG PIV Q3WK X 7 DOSES)
     Route: 040
     Dates: start: 20241125

REACTIONS (2)
  - Blood pressure abnormal [Not Recovered/Not Resolved]
  - Weight decreased [Not Recovered/Not Resolved]
